FAERS Safety Report 7465542-3 (Version None)
Quarter: 2011Q2

REPORT INFORMATION
  Report Type: 
  Country: None (occurrence: None)
  Receive Date: 20110509
  Receipt Date: 20110503
  Transmission Date: 20111010
  Serious: Yes (Disabling)
  Sender: FDA-Public Use
  Company Number: DK-SANOFI-AVENTIS-2010SA066747

PATIENT
  Age: 74 Year
  Sex: Male
  Weight: 86 kg

DRUGS (6)
  1. SIMVASTATIN [Concomitant]
     Indication: HYPERCHOLESTEROLAEMIA
     Dates: start: 20090617, end: 20100224
  2. METOPROLOL SUCCINATE [Concomitant]
     Indication: ANGINA PECTORIS
     Dates: start: 20090609, end: 20100224
  3. ASPIRIN [Concomitant]
     Indication: ANGINA PECTORIS
     Dosage: 75 MILLIGRAM(S)
     Route: 048
     Dates: start: 20090609
  4. PLAVIX [Suspect]
     Indication: PROPHYLAXIS
     Dosage: 75 MILLIGRAM(S)
     Route: 048
     Dates: start: 20090722, end: 20100722
  5. PLAVIX [Suspect]
     Dosage: 75 MILLIGRAM(S)
     Route: 048
     Dates: start: 20090722, end: 20100722
  6. PLAVIX [Suspect]
     Indication: ANGIOPLASTY
     Dosage: 75 MILLIGRAM(S)
     Route: 048
     Dates: start: 20090722, end: 20100722

REACTIONS (5)
  - GUILLAIN-BARRE SYNDROME [None]
  - MUSCULAR WEAKNESS [None]
  - WALKING DISABILITY [None]
  - SENSORY LOSS [None]
  - POLYNEUROPATHY [None]
